FAERS Safety Report 21761856 (Version 1)
Quarter: 2022Q4

REPORT INFORMATION
  Report Type: Spontaneous
  Country: FR (occurrence: FR)
  Receive Date: 20221221
  Receipt Date: 20221221
  Transmission Date: 20230112
  Serious: Yes (Hospitalization, Other)
  Sender: FDA-Public Use
  Company Number: FR-SA-SAC20221220000636

PATIENT
  Age: 64 Year
  Sex: Female

DRUGS (4)
  1. DUPIXENT [Suspect]
     Active Substance: DUPILUMAB
     Indication: Asthma
     Dosage: 300MG, QOW
     Dates: start: 202112
  2. OMALIZUMAB [Concomitant]
     Active Substance: OMALIZUMAB
     Dosage: 10MG, QD
  3. TRALOKINUMAB [Concomitant]
     Active Substance: TRALOKINUMAB
     Dosage: 10- 15MG/DAY
  4. NUCALA [Concomitant]
     Active Substance: MEPOLIZUMAB
     Dosage: 100MG SC, QM

REACTIONS (10)
  - Eosinophilia [Unknown]
  - Diplopia [Unknown]
  - Hypoaesthesia [Unknown]
  - Paraesthesia [Unknown]
  - Skin lesion [Unknown]
  - Arthralgia [Unknown]
  - Myalgia [Unknown]
  - Tracheal disorder [Unknown]
  - Cerebrovascular accident [Unknown]
  - Eosinophilic granulomatosis with polyangiitis [Unknown]

NARRATIVE: CASE EVENT DATE: 20211214
